FAERS Safety Report 25689976 (Version 1)
Quarter: 2025Q3

REPORT INFORMATION
  Report Type: Spontaneous
  Country: MX (occurrence: MX)
  Receive Date: 20250818
  Receipt Date: 20250818
  Transmission Date: 20251021
  Serious: Yes (Congenital Anomaly, Other)
  Sender: AMNEAL
  Company Number: MX-AMNEAL PHARMACEUTICALS-2025-AMRX-03113

PATIENT
  Sex: Male
  Weight: 3.57 kg

DRUGS (3)
  1. SIROLIMUS [Suspect]
     Active Substance: SIROLIMUS
     Indication: Rhabdomyoma
     Dosage: 3 MILLIGRAM, DAILY (2 MG/M2/DAY)
     Route: 064
  2. SIROLIMUS [Suspect]
     Active Substance: SIROLIMUS
     Dosage: 6 MILLIGRAM, DAILY
     Route: 064
  3. SIROLIMUS [Suspect]
     Active Substance: SIROLIMUS
     Dosage: 0.3 MILLIGRAM, DAILY
     Route: 048

REACTIONS (3)
  - Necrotising enterocolitis neonatal [Unknown]
  - Gastrointestinal haemorrhage [Unknown]
  - Foetal exposure during pregnancy [Unknown]
